FAERS Safety Report 6309450-X (Version None)
Quarter: 2009Q3

REPORT INFORMATION
  Report Type: 
  Country: None (occurrence: None)
  Receive Date: 20090814
  Receipt Date: 20090807
  Transmission Date: 20100115
  Serious: Yes (Hospitalization, Other)
  Sender: FDA-Public Use
  Company Number: JP-JNJFOC-20090803619

PATIENT
  Sex: Female

DRUGS (5)
  1. CRAVIT [Suspect]
     Indication: DECREASED APPETITE
     Route: 048
  2. DENOSUMAB [Suspect]
     Indication: OSTEOPOROSIS
     Route: 058
  3. PRIMPERAN [Suspect]
     Indication: DECREASED APPETITE
     Route: 048
  4. BIOFERMIN [Suspect]
     Indication: DECREASED APPETITE
     Route: 048
  5. CALCICHEW D3 [Suspect]
     Indication: OSTEOPOROSIS
     Dosage: 2 DF
     Route: 048

REACTIONS (4)
  - ASPIRATION [None]
  - FALL [None]
  - INTESTINAL OBSTRUCTION [None]
  - PNEUMONIA [None]
